FAERS Safety Report 4611169-8 (Version None)
Quarter: 2005Q1

REPORT INFORMATION
  Report Type: 
  Country: None (occurrence: None)
  Receive Date: 20050315
  Receipt Date: 20050315
  Transmission Date: 20050727
  Serious: Yes (Life-Threatening)
  Sender: FDA-Public Use
  Company Number: None

PATIENT
  Age: 52 Year
  Sex: Female
  Weight: 56 kg

DRUGS (4)
  1. TAXOTERE [Suspect]
     Dosage: 75 MG INFUSION
     Route: 042
  2. TAXOTERE [Suspect]
     Dosage: 75 MG INFUSION
     Route: 042
  3. XELODA [Suspect]
     Dosage: ORALLY BID X 14 DAYS
     Route: 048
  4. XELODA [Suspect]
     Dosage: 150 MG ORALLY BID X 14 DAYS
     Route: 048

REACTIONS (1)
  - NEUTROPENIA [None]
